FAERS Safety Report 5958922-6 (Version None)
Quarter: 2008Q4

REPORT INFORMATION
  Report Type: 
  Country: None (occurrence: None)
  Receive Date: 20081118
  Receipt Date: 20081106
  Transmission Date: 20090506
  Serious: Yes (Hospitalization)
  Sender: FDA-Public Use
  Company Number: 230795K07USA

PATIENT
  Age: 53 Year
  Sex: Female

DRUGS (3)
  1. REBIF [Suspect]
     Indication: MULTIPLE SCLEROSIS
     Dosage: 44 MCG, 3 IN 1 WEEKS, SUBCUTANEOUS
     Route: 058
     Dates: start: 20060609, end: 20070131
  2. PHENERGAN (PROMETHAZINE) [Concomitant]
  3. REGLAN (METOCLOPRAMIDE /00041901/) [Concomitant]

REACTIONS (2)
  - ASTHENIA [None]
  - URINARY TRACT INFECTION STAPHYLOCOCCAL [None]
